FAERS Safety Report 6071194-X (Version None)
Quarter: 2009Q1

REPORT INFORMATION
  Report Type: 
  Country: None (occurrence: None)
  Receive Date: 20090209
  Receipt Date: 20081210
  Transmission Date: 20090719
  Serious: No
  Sender: FDA-Public Use
  Company Number: US-B.I. PHARMACEUTICALS,INC./RIDGEFIELD-2007-BP-22389BP

PATIENT
  Age: 60 Year
  Sex: Male

DRUGS (5)
  1. FLOMAX [Suspect]
     Indication: BENIGN PROSTATIC HYPERPLASIA
     Dosage: .4MG
     Route: 048
     Dates: start: 20061001
  2. NORVASC [Concomitant]
     Indication: HYPERTENSION
  3. LORAZEPAM [Concomitant]
  4. NEXIUM [Concomitant]
  5. WELLCHOL [Concomitant]
     Indication: BLOOD CHOLESTEROL

REACTIONS (8)
  - DRY MOUTH [None]
  - EJACULATION FAILURE [None]
  - ERECTILE DYSFUNCTION [None]
  - GROIN PAIN [None]
  - INFERTILITY MALE [None]
  - PAIN IN EXTREMITY [None]
  - PENILE PAIN [None]
  - SENSORY LOSS [None]
